FAERS Safety Report 18871627 (Version 1)
Quarter: 2021Q1

REPORT INFORMATION
  Report Type: Spontaneous
  Country: FI (occurrence: FI)
  Receive Date: 20210210
  Receipt Date: 20210210
  Transmission Date: 20210420
  Serious: Yes (Hospitalization)
  Sender: FDA-Public Use
  Company Number: FI-ACCORD-214863

PATIENT
  Age: 50 Year
  Sex: Female
  Weight: 78 kg

DRUGS (7)
  1. DEXAMETASON ABCUR [Concomitant]
     Dosage: STRENGTH?4 MG, ACCORDING TO SEPARATE ADVICE
     Route: 048
  2. PANADOL FORTE [Concomitant]
     Dosage: STRENGTH?1000 MG, 1 X 1?3
     Route: 048
  3. GRANISETRON STADA [Concomitant]
     Dosage: STRENGTH? 1 MG, ACCORDING TO SEPARATE?ADVICE
     Route: 048
  4. PRIMPERAN [Concomitant]
     Active Substance: METOCLOPRAMIDE HYDROCHLORIDE
     Dosage: STRENGTH?10 MG, 1 X 1?3
     Route: 048
  5. DOCETAXEL ACCORD [Suspect]
     Active Substance: DOCETAXEL
     Indication: BREAST CANCER
     Dosage: STRENGTH :160 MG/8 ML
     Route: 042
     Dates: start: 20201231, end: 20201231
  6. BURANA [Concomitant]
     Active Substance: IBUPROFEN
     Dosage: STRENGTH? 600 MG, 1 X 1?3
     Route: 048
  7. ESOMEPRAZOLE SANDOZ [Concomitant]
     Active Substance: ESOMEPRAZOLE
     Dosage: STREGTH?20 MG, 1?2 X 1
     Route: 048

REACTIONS (6)
  - Flushing [Recovered/Resolved]
  - Heart rate increased [Recovered/Resolved]
  - Dizziness [Recovered/Resolved]
  - Dyspnoea [Recovered/Resolved]
  - Chest discomfort [Recovered/Resolved]
  - Blood pressure increased [Recovered/Resolved]

NARRATIVE: CASE EVENT DATE: 20201231
